FAERS Safety Report 23043144 (Version 4)
Quarter: 2023Q4

REPORT INFORMATION
  Report Type: Spontaneous
  Country: VE (occurrence: None)
  Receive Date: 20231009
  Receipt Date: 20231212
  Transmission Date: 20240109
  Serious: Yes (Life-Threatening, Hospitalization, Other)
  Sender: FDA-Public Use
  Company Number: VE-ROCHE-3432545

PATIENT
  Age: 79 Year
  Sex: Female

DRUGS (2)
  1. VABYSMO [Suspect]
     Active Substance: FARICIMAB\FARICIMAB-SVOA
     Indication: Age-related macular degeneration
     Dosage: (0.05ML OF 120MG/ML) UNIQUE DOSE
     Route: 050
     Dates: start: 20230929, end: 20230929
  2. EUTHYROX [Concomitant]
     Active Substance: LEVOTHYROXINE SODIUM
     Indication: Hypothyroidism

REACTIONS (19)
  - Vertigo [Not Recovered/Not Resolved]
  - Headache [Not Recovered/Not Resolved]
  - Seizure [Not Recovered/Not Resolved]
  - Subarachnoid haemorrhage [Unknown]
  - Hemiparesis [Not Recovered/Not Resolved]
  - Neurological decompensation [Not Recovered/Not Resolved]
  - Haemodynamic instability [Not Recovered/Not Resolved]
  - Intracranial pressure increased [Not Recovered/Not Resolved]
  - Hydrocephalus [Unknown]
  - Off label use [Unknown]
  - Aneurysm [Unknown]
  - Depressed level of consciousness [Unknown]
  - Stupor [Unknown]
  - Tracheostomy infection [Unknown]
  - Vaginal infection [Unknown]
  - Vaginal discharge [Unknown]
  - Nervous system disorder [Unknown]
  - Prothrombin time prolonged [Unknown]
  - Activated partial thromboplastin time prolonged [Unknown]

NARRATIVE: CASE EVENT DATE: 20230929
